FAERS Safety Report 23857812 (Version 6)
Quarter: 2024Q4

REPORT INFORMATION
  Report Type: Spontaneous
  Country: CA (occurrence: CA)
  Receive Date: 20240515
  Receipt Date: 20241227
  Transmission Date: 20250114
  Serious: Yes (Hospitalization, Other)
  Sender: CELLTRION
  Company Number: CA-PFIZER INC-202300442943

PATIENT

DRUGS (10)
  1. INFLECTRA [Suspect]
     Active Substance: INFLIXIMAB-DYYB
     Indication: Crohn^s disease
     Dosage: 300MG, AT 0, 2, 6, THEN EVERY 8 WEEKS
     Route: 042
     Dates: start: 20231124
  2. INFLECTRA [Suspect]
     Active Substance: INFLIXIMAB-DYYB
     Dosage: 300MG, AT 0, 2, 6, THEN EVERY 8 WEEKS
     Route: 042
     Dates: start: 20231209
  3. INFLECTRA [Suspect]
     Active Substance: INFLIXIMAB-DYYB
     Dosage: 300MG, AT 0, 2, 6, THEN EVERY 8 WEEKS
     Route: 042
     Dates: start: 20240307
  4. INFLECTRA [Suspect]
     Active Substance: INFLIXIMAB-DYYB
     Dosage: 300MG, AT 0, 2, 6, THEN EVERY 8 WEEKS
     Route: 042
     Dates: start: 20240506
  5. INFLECTRA [Suspect]
     Active Substance: INFLIXIMAB-DYYB
     Dosage: 400MG, AT 0, 2, 6, THEN EVERY 8 WEEKS (WEEK 0 RE-INDUCTION)
     Route: 042
     Dates: start: 20240522
  6. INFLECTRA [Suspect]
     Active Substance: INFLIXIMAB-DYYB
     Dosage: 400MG, AT 0, 2, 6, THEN EVERY 8 WEEKS (RE-INDUCTION)
     Route: 042
     Dates: start: 20240605
  7. INFLECTRA [Suspect]
     Active Substance: INFLIXIMAB-DYYB
     Dosage: 400MG, AT 0, 2, 6, THEN EVERY 8 WEEKS (RE-INDUCTION)
     Route: 042
     Dates: start: 20240704
  8. INFLECTRA [Suspect]
     Active Substance: INFLIXIMAB-DYYB
     Dosage: 400 MG, AT 0,2,6 WEEKS AND THEN EVERY 8 WEEKS
     Route: 042
     Dates: start: 20240829
  9. INFLECTRA [Suspect]
     Active Substance: INFLIXIMAB-DYYB
     Dosage: 400 MG, AT 0,2,6 WEEKS AND THEN EVERY 8 WEEKS
     Route: 042
     Dates: start: 20241022
  10. INFLECTRA [Suspect]
     Active Substance: INFLIXIMAB-DYYB
     Dosage: 400 MG AFTER 7 WEEKS AND 6 DAYS (400 MG, AT 0,2,6 WEEKS AND THEN EVERY 8 WEEKS)
     Route: 042
     Dates: start: 20241218

REACTIONS (5)
  - Fistula [Recovered/Resolved]
  - Condition aggravated [Not Recovered/Not Resolved]
  - Arthralgia [Recovered/Resolved]
  - Off label use [Unknown]
  - Off label use [Unknown]

NARRATIVE: CASE EVENT DATE: 20231124
